FAERS Safety Report 8964128 (Version 2)
Quarter: 2013Q1

REPORT INFORMATION
  Report Type: Spontaneous
  Country: SI (occurrence: SI)
  Receive Date: 20121213
  Receipt Date: 20130102
  Transmission Date: 20140127
  Serious: Yes (Death)
  Sender: FDA-Public Use
  Company Number: SI-B.I. PHARMACEUTICALS,INC./RIDGEFIELD-2012-AP-01099AP

PATIENT
  Age: 72 Year
  Sex: Female

DRUGS (5)
  1. PRADAXA [Suspect]
     Indication: ATRIAL FIBRILLATION
     Dosage: 300 MG
     Route: 048
     Dates: start: 20121023, end: 20121111
  2. AMPRIL [Concomitant]
  3. AMLOPIN [Concomitant]
  4. DIAPREL MR [Concomitant]
  5. TULIP [Concomitant]

REACTIONS (1)
  - Cerebrovascular accident [Fatal]
